FAERS Safety Report 4807514-0 (Version None)
Quarter: 2005Q4

REPORT INFORMATION
  Report Type: 
  Country: None (occurrence: None)
  Receive Date: 20051020
  Receipt Date: 20051013
  Transmission Date: 20060501
  Serious: Yes (Other)
  Sender: FDA-Public Use
  Company Number: 218620

PATIENT
  Sex: Female

DRUGS (1)
  1. XOLAIR [Suspect]
     Dosage: 225 MG, Q2W, SUBCUTANEOUS
     Route: 058
     Dates: start: 20050601

REACTIONS (5)
  - ANAPHYLACTIC REACTION [None]
  - ASTHENIA [None]
  - BLOOD PRESSURE FLUCTUATION [None]
  - FATIGUE [None]
  - THROAT TIGHTNESS [None]
